FAERS Safety Report 5444148-1 (Version None)
Quarter: 2007Q3

REPORT INFORMATION
  Report Type: 
  Country: None (occurrence: None)
  Receive Date: 20070904
  Receipt Date: 20070904
  Transmission Date: 20080115
  Serious: Yes (Other)
  Sender: FDA-Public Use
  Company Number: None

PATIENT
  Age: 44 Year
  Sex: Male
  Weight: 83.9154 kg

DRUGS (1)
  1. EQUATE HEADACHE RELIEF 565MG LNK INTERNATIONAL, HAUPPAUGE, NY [Suspect]
     Indication: TENSION HEADACHE
     Dosage: ADULTS 2 TABLETS EVERY 4 HRS PO
     Route: 048
     Dates: start: 20060101, end: 20070628

REACTIONS (3)
  - HEADACHE [None]
  - MEDICATION ERROR [None]
  - REBOUND EFFECT [None]
